FAERS Safety Report 14308544 (Version 3)
Quarter: 2018Q3

REPORT INFORMATION
  Report Type: Spontaneous
  Country: GB (occurrence: GB)
  Receive Date: 20171220
  Receipt Date: 20180912
  Transmission Date: 20181010
  Serious: Yes (Life-Threatening, Hospitalization, Disabling)
  Sender: FDA-Public Use
  Company Number: GB-DRREDDYS-GER/UKI/09/0008229

PATIENT
  Age: 63 Year
  Sex: Male
  Weight: 80 kg

DRUGS (45)
  1. LANSOPRAZOLE. [Suspect]
     Active Substance: LANSOPRAZOLE
     Indication: PRODUCT USED FOR UNKNOWN INDICATION
     Route: 048
     Dates: start: 20060725, end: 20060808
  2. OMEPRAZOLE. [Suspect]
     Active Substance: OMEPRAZOLE
     Route: 042
     Dates: start: 20050505, end: 20050527
  3. OMEPRAZOLE. [Suspect]
     Active Substance: OMEPRAZOLE
     Route: 042
     Dates: start: 20050517
  4. OMEPRAZOLE. [Suspect]
     Active Substance: OMEPRAZOLE
     Route: 042
     Dates: start: 20050527
  5. OMEPRAZOLE. [Suspect]
     Active Substance: OMEPRAZOLE
     Route: 042
     Dates: start: 20050618
  6. OMEPRAZOLE. [Suspect]
     Active Substance: OMEPRAZOLE
     Route: 042
     Dates: start: 20060601
  7. OMEPRAZOLE. [Suspect]
     Active Substance: OMEPRAZOLE
     Indication: PRODUCT USED FOR UNKNOWN INDICATION
     Route: 042
     Dates: start: 20050313
  8. OMEPRAZOLE. [Suspect]
     Active Substance: OMEPRAZOLE
     Route: 042
     Dates: start: 20050910
  9. OMEPRAZOLE. [Suspect]
     Active Substance: OMEPRAZOLE
     Route: 042
     Dates: start: 20060509
  10. OMEPRAZOLE. [Suspect]
     Active Substance: OMEPRAZOLE
     Route: 042
     Dates: start: 20060527
  11. RABEPRAZOLE [Suspect]
     Active Substance: RABEPRAZOLE
     Indication: PRODUCT USED FOR UNKNOWN INDICATION
     Route: 048
  12. LOSEC [Suspect]
     Active Substance: OMEPRAZOLE
     Route: 048
     Dates: end: 200606
  13. OMEPRAZOLE. [Suspect]
     Active Substance: OMEPRAZOLE
     Route: 042
     Dates: start: 20050811
  14. OMEPRAZOLE. [Suspect]
     Active Substance: OMEPRAZOLE
     Route: 042
     Dates: start: 20051213
  15. OMEPRAZOLE. [Suspect]
     Active Substance: OMEPRAZOLE
     Route: 042
     Dates: start: 20060617
  16. OMEPRAZOLE. [Suspect]
     Active Substance: OMEPRAZOLE
     Route: 042
     Dates: start: 20050505
  17. OMEPRAZOLE. [Suspect]
     Active Substance: OMEPRAZOLE
     Route: 042
     Dates: start: 20050630
  18. OMEPRAZOLE. [Suspect]
     Active Substance: OMEPRAZOLE
     Route: 042
     Dates: start: 20060223
  19. OMEPRAZOLE. [Suspect]
     Active Substance: OMEPRAZOLE
     Route: 042
     Dates: start: 20060501
  20. OMEPRAZOLE. [Suspect]
     Active Substance: OMEPRAZOLE
     Route: 042
     Dates: start: 200606
  21. OMEPRAZOLE. [Suspect]
     Active Substance: OMEPRAZOLE
     Route: 042
     Dates: start: 20060609
  22. OMEPRAZOLE. [Suspect]
     Active Substance: OMEPRAZOLE
     Route: 042
     Dates: end: 20060527
  23. LOSEC [Suspect]
     Active Substance: OMEPRAZOLE
     Dates: start: 20060101, end: 20060501
  24. OMEPRAZOLE. [Suspect]
     Active Substance: OMEPRAZOLE
     Route: 042
     Dates: start: 20050714
  25. OMEPRAZOLE. [Suspect]
     Active Substance: OMEPRAZOLE
     Route: 042
     Dates: start: 20051009
  26. OMEPRAZOLE. [Suspect]
     Active Substance: OMEPRAZOLE
     Route: 042
     Dates: start: 20051018
  27. LOSEC [Suspect]
     Active Substance: OMEPRAZOLE
     Route: 048
     Dates: end: 2002
  28. OMEPRAZOLE. [Suspect]
     Active Substance: OMEPRAZOLE
     Route: 042
     Dates: start: 20051105
  29. OMEPRAZOLE. [Suspect]
     Active Substance: OMEPRAZOLE
     Route: 042
     Dates: start: 20051113
  30. OMEPRAZOLE. [Suspect]
     Active Substance: OMEPRAZOLE
     Route: 042
     Dates: start: 20051128
  31. OMEPRAZOLE. [Suspect]
     Active Substance: OMEPRAZOLE
     Route: 042
     Dates: start: 20051129
  32. OMEPRAZOLE. [Suspect]
     Active Substance: OMEPRAZOLE
     Route: 042
     Dates: start: 20060328
  33. OMEPRAZOLE. [Suspect]
     Active Substance: OMEPRAZOLE
     Route: 042
     Dates: end: 200606
  34. OMEPRAZOLE. [Suspect]
     Active Substance: OMEPRAZOLE
     Indication: PRODUCT USED FOR UNKNOWN INDICATION
     Route: 048
     Dates: end: 20020101
  35. PANTOPRAZOLE [Suspect]
     Active Substance: PANTOPRAZOLE
     Indication: GASTROOESOPHAGEAL REFLUX DISEASE
  36. OMEPRAZOLE. [Suspect]
     Active Substance: OMEPRAZOLE
     Route: 042
     Dates: start: 20050411
  37. OMEPRAZOLE. [Suspect]
     Active Substance: OMEPRAZOLE
     Route: 042
     Dates: start: 20050827
  38. PANTOZOL [Suspect]
     Active Substance: PANTOPRAZOLE SODIUM
     Indication: GASTROOESOPHAGEAL REFLUX DISEASE
  39. ACIPHEX [Suspect]
     Active Substance: RABEPRAZOLE SODIUM
     Indication: PRODUCT USED FOR UNKNOWN INDICATION
  40. LOSEC [Suspect]
     Active Substance: OMEPRAZOLE
     Indication: GASTROOESOPHAGEAL REFLUX DISEASE
     Route: 048
  41. OMEPRAZOLE. [Suspect]
     Active Substance: OMEPRAZOLE
     Route: 042
     Dates: start: 20050730
  42. OMEPRAZOLE. [Suspect]
     Active Substance: OMEPRAZOLE
     Route: 042
     Dates: start: 20050819
  43. OMEPRAZOLE. [Suspect]
     Active Substance: OMEPRAZOLE
     Route: 042
     Dates: start: 20050924
  44. OMEPRAZOLE. [Suspect]
     Active Substance: OMEPRAZOLE
     Route: 042
     Dates: start: 20051115, end: 20050527
  45. OMEPRAZOLE. [Suspect]
     Active Substance: OMEPRAZOLE
     Route: 042
     Dates: start: 20060209

REACTIONS (5)
  - Hypoparathyroidism secondary [Unknown]
  - Hypomagnesaemia [Recovered/Resolved]
  - Tetany [Unknown]
  - Tetanus [Unknown]
  - Hypocalcaemia [Recovered/Resolved]

NARRATIVE: CASE EVENT DATE: 20030101
